FAERS Safety Report 13375002 (Version 1)
Quarter: 2017Q1

REPORT INFORMATION
  Report Type: Spontaneous
  Country: US (occurrence: US)
  Receive Date: 20170327
  Receipt Date: 20170327
  Transmission Date: 20170429
  Serious: Yes (Other)
  Sender: FDA-Public Use
  Company Number: US-LUNDBECK-DKLU2028161

PATIENT
  Age: 11 Year
  Sex: Female

DRUGS (3)
  1. FELBAMATE. [Concomitant]
     Active Substance: FELBAMATE
     Indication: PRODUCT USED FOR UNKNOWN INDICATION
     Route: 065
  2. ONFI [Suspect]
     Active Substance: CLOBAZAM
     Indication: LENNOX-GASTAUT SYNDROME
     Route: 048
  3. DEPAKOTE [Concomitant]
     Active Substance: DIVALPROEX SODIUM
     Indication: PRODUCT USED FOR UNKNOWN INDICATION
     Route: 065

REACTIONS (3)
  - Aggression [Unknown]
  - Seizure [Unknown]
  - Agitation [Unknown]

NARRATIVE: CASE EVENT DATE: 201603
